FAERS Safety Report 14938103 (Version 2)
Quarter: 2019Q4

REPORT INFORMATION
  Report Type: Other
  Country: CA (occurrence: CA)
  Receive Date: 20180525
  Receipt Date: 20191127
  Transmission Date: 20200122
  Serious: Yes (Other)
  Sender: FDA-Public Use
  Company Number: CA-APOTEX-2018AP013795

PATIENT
  Sex: Female

DRUGS (8)
  1. BUDESONIDE W/FORMOTEROL FUMARATE [Concomitant]
     Active Substance: BUDESONIDE\FORMOTEROL FUMARATE
     Indication: ASTHMA
     Dosage: 2 DF, QD
     Route: 050
  2. OMNARIS [Concomitant]
     Active Substance: CICLESONIDE
     Indication: RHINITIS ALLERGIC
     Dosage: 4 DF, QD
     Route: 045
  3. SPIRIVA [Concomitant]
     Active Substance: TIOTROPIUM BROMIDE MONOHYDRATE
     Indication: ASTHMA
     Dosage: 2 DF, QD
     Route: 050
  4. IBUPROFEN. [Concomitant]
     Active Substance: IBUPROFEN
     Indication: NERVE COMPRESSION
     Dosage: 1 DF, UNK
     Route: 048
  5. TERBUTALINE SULFATE. [Concomitant]
     Active Substance: TERBUTALINE SULFATE
     Indication: ASTHMA
     Dosage: 2 DF, UNK
     Route: 050
  6. LORATADINE. [Concomitant]
     Active Substance: LORATADINE
     Indication: CONJUNCTIVITIS
     Dosage: 1 DF, QD
     Route: 048
  7. SYMBICORT [Concomitant]
     Active Substance: BUDESONIDE\FORMOTEROL FUMARATE DIHYDRATE
     Indication: ASTHMA
     Dosage: 2 DF, BID
     Route: 050
  8. MONTELUKAST [Suspect]
     Active Substance: MONTELUKAST SODIUM
     Indication: ASTHMA
     Dosage: 10 MG, QD
     Route: 048

REACTIONS (10)
  - Parosmia [Unknown]
  - Conjunctivitis [Unknown]
  - Pneumonia [Unknown]
  - Dyspnoea [Unknown]
  - Paranasal sinus discomfort [Unknown]
  - Sinusitis [Unknown]
  - Blister [Unknown]
  - Swelling face [Unknown]
  - Chest discomfort [Unknown]
  - Nasal congestion [Unknown]
